FAERS Safety Report 16503595 (Version 1)
Quarter: 2019Q2

REPORT INFORMATION
  Report Type: Spontaneous
  Country: US (occurrence: US)
  Receive Date: 20190521
  Receipt Date: 20190521
  Transmission Date: 20190711
  Serious: Yes (Hospitalization)
  Sender: FDA-Public Use
  Company Number: None

PATIENT
  Age: 60 Year
  Sex: Male

DRUGS (6)
  1. HUMIRA [Suspect]
     Active Substance: ADALIMUMAB
     Indication: COLITIS
     Route: 058
     Dates: start: 20181011
  2. PREDNISONE. [Concomitant]
     Active Substance: PREDNISONE
  3. CLEOCTIN [Concomitant]
  4. TRAMADOL. [Concomitant]
     Active Substance: TRAMADOL
  5. APRISO [Concomitant]
     Active Substance: MESALAMINE
  6. CIPROFLOXACIN. [Concomitant]
     Active Substance: CIPROFLOXACIN

REACTIONS (5)
  - Condition aggravated [None]
  - Quality of life decreased [None]
  - Diarrhoea [None]
  - Infection [None]
  - Abdominal pain [None]

NARRATIVE: CASE EVENT DATE: 20190508
